FAERS Safety Report 7900249-7 (Version None)
Quarter: 2011Q4

REPORT INFORMATION
  Report Type: 
  Country: None (occurrence: None)
  Receive Date: 20111104
  Receipt Date: 20111026
  Transmission Date: 20120403
  Serious: Yes (Other)
  Sender: FDA-Public Use
  Company Number: GER/UKI/11/0021716

PATIENT
  Age: 50 Year
  Sex: Female
  Weight: 54.5 kg

DRUGS (9)
  1. DIAZEPAM [Concomitant]
  2. ACETAMINOPHEN W/ CODEINE [Concomitant]
  3. OMEPRAZOLE [Suspect]
     Dosage: 20 MG, 1 IN 1 D
  4. MICRONOR [Concomitant]
  5. VESICARE [Suspect]
     Indication: HYPERTONIC BLADDER
     Route: 048
     Dates: start: 20101216, end: 20110310
  6. TEMAZEPAM [Concomitant]
  7. VENTOLIN [Concomitant]
  8. CO-PROXAMOL (APOREX) [Concomitant]
  9. RHINOLAST (AZELASTINE HYDROCHLORIDE) [Concomitant]

REACTIONS (6)
  - SKIN BURNING SENSATION [None]
  - ALOPECIA [None]
  - SKIN DISORDER [None]
  - VISION BLURRED [None]
  - PALPITATIONS [None]
  - DRY EYE [None]
